FAERS Safety Report 15114165 (Version 1)
Quarter: 2018Q3

REPORT INFORMATION
  Report Type: Spontaneous
  Country: CN (occurrence: CN)
  Receive Date: 20180706
  Receipt Date: 20180706
  Transmission Date: 20181010
  Serious: Yes (Other)
  Sender: FDA-Public Use
  Company Number: CN-FRESENIUS KABI-FK201807523

PATIENT
  Age: 4 Year
  Sex: Male

DRUGS (4)
  1. LEVETIRACETAM. [Concomitant]
     Active Substance: LEVETIRACETAM
     Indication: ENCEPHALITIS ALLERGIC
     Route: 065
  2. IMMUNE GLOBULIN NOS [Concomitant]
     Active Substance: IMMUNE GLOBULIN NOS
     Indication: ENCEPHALITIS ALLERGIC
     Route: 042
  3. VIDARABINE [Concomitant]
     Active Substance: VIDARABINE
     Indication: ENCEPHALITIS ALLERGIC
     Route: 065
  4. METHYLPREDNISOLONE (MANUFACTURER UNKNOWN) [Suspect]
     Active Substance: METHYLPREDNISOLONE
     Indication: ENCEPHALITIS ALLERGIC
     Dosage: CHALLENGING DOSE
     Route: 065

REACTIONS (1)
  - Condition aggravated [Not Recovered/Not Resolved]
